FAERS Safety Report 7320248-6 (Version None)
Quarter: 2011Q1

REPORT INFORMATION
  Report Type: 
  Country: None (occurrence: None)
  Receive Date: 20110223
  Receipt Date: 20110223
  Transmission Date: 20110831
  Serious: Yes (Hospitalization)
  Sender: FDA-Public Use
  Company Number: None

PATIENT
  Age: 64 Year
  Sex: Male
  Weight: 85.9 kg

DRUGS (1)
  1. SULFAMETHOXAZOLE [Suspect]
     Dates: start: 20110125, end: 20110217

REACTIONS (2)
  - PANCYTOPENIA [None]
  - FATIGUE [None]
